FAERS Safety Report 12010325 (Version 1)
Quarter: 2016Q1

REPORT INFORMATION
  Report Type: Spontaneous
  Country: FR (occurrence: FR)
  Receive Date: 20160205
  Receipt Date: 20160205
  Transmission Date: 20160526
  Serious: Yes (Hospitalization, Other)
  Sender: FDA-Public Use
  Company Number: FR-PFIZER INC-2016065373

PATIENT
  Age: 30 Year
  Sex: Female

DRUGS (7)
  1. KEPPRA [Suspect]
     Active Substance: LEVETIRACETAM
     Dosage: UNK
  2. STILNOX [Suspect]
     Active Substance: ZOLPIDEM TARTRATE
     Dosage: UNK
  3. SPECIAFOLDINE [Concomitant]
     Active Substance: FOLIC ACID
     Dosage: UNK
  4. LAMICTAL [Suspect]
     Active Substance: LAMOTRIGINE
     Dosage: UNK
  5. XEROQUEL [Suspect]
     Active Substance: QUETIAPINE FUMARATE
     Dosage: UNK
  6. TERCIAN [Suspect]
     Active Substance: CYAMEMAZINE
     Dosage: UNK
  7. ZOLOFT [Suspect]
     Active Substance: SERTRALINE HYDROCHLORIDE
     Dosage: UNK

REACTIONS (6)
  - Amniocentesis abnormal [Unknown]
  - Amniotic cavity infection [Unknown]
  - Suicide attempt [Unknown]
  - Alcohol poisoning [Unknown]
  - Toxicity to various agents [Unknown]
  - Premature rupture of membranes [Unknown]

NARRATIVE: CASE EVENT DATE: 2015
